FAERS Safety Report 15842133 (Version 1)
Quarter: 2019Q1

REPORT INFORMATION
  Report Type: Spontaneous
  Country: US (occurrence: US)
  Receive Date: 20190117
  Receipt Date: 20190117
  Transmission Date: 20190417
  Serious: Yes (Other)
  Sender: FDA-Public Use
  Company Number: None

PATIENT
  Age: 3 Year
  Sex: Female
  Weight: 13.5 kg

DRUGS (1)
  1. OSELTAMIVIR PHOSPHATE FOR ORAL SUSPENSION [Suspect]
     Active Substance: OSELTAMIVIR PHOSPHATE
     Indication: INFLUENZA
     Dosage: ?          QUANTITY:60 ML;?
     Route: 048
     Dates: start: 20190111, end: 20190115

REACTIONS (8)
  - Glassy eyes [None]
  - Enuresis [None]
  - Aggression [None]
  - Sleep disorder [None]
  - Flat affect [None]
  - Neurological symptom [None]
  - Disturbance in attention [None]
  - Anger [None]

NARRATIVE: CASE EVENT DATE: 20190114
